FAERS Safety Report 23490628 (Version 1)
Quarter: 2024Q1

REPORT INFORMATION
  Report Type: Spontaneous
  Country: CN (occurrence: CN)
  Receive Date: 20240206
  Receipt Date: 20240206
  Transmission Date: 20240410
  Serious: Yes (Hospitalization)
  Sender: FDA-Public Use
  Company Number: CN-SHANGHAI JUNSHI BIOSCIENCES CO., LTD.-CN2024009242

PATIENT

DRUGS (5)
  1. TORIPALIMAB [Suspect]
     Active Substance: TORIPALIMAB
     Indication: Nasopharyngeal cancer
     Dosage: UNK
     Route: 041
  2. TORIPALIMAB [Suspect]
     Active Substance: TORIPALIMAB
     Dosage: 240 MG, Q3W
     Route: 041
     Dates: start: 20231207, end: 20231213
  3. DOCETAXEL [Suspect]
     Active Substance: DOCETAXEL\DOCETAXEL ANHYDROUS
     Indication: Nasopharyngeal cancer
     Dosage: 90MG (60MG/M^2, D1)
     Route: 041
     Dates: start: 20231208, end: 20231213
  4. CATEQUENTINIB [Suspect]
     Active Substance: CATEQUENTINIB
     Indication: Nasopharyngeal cancer
     Dosage: UNK
     Route: 048
  5. CATEQUENTINIB [Suspect]
     Active Substance: CATEQUENTINIB
     Dosage: 12 MG, QD, DISCONTINUATION FOR 1 WEEK EVERY 2 WEEKS
     Route: 048
     Dates: start: 20231207, end: 20231213

REACTIONS (1)
  - Myelosuppression [Unknown]

NARRATIVE: CASE EVENT DATE: 20231213
